FAERS Safety Report 8862616 (Version 2)
Quarter: 2012Q4

REPORT INFORMATION
  Report Type: Report from Study
  Country: US (occurrence: US)
  Receive Date: 20121026
  Receipt Date: 20121226
  Transmission Date: 20130627
  Serious: Yes (Death)
  Sender: FDA-Public Use
  Company Number: US-CELGENEUS-163-21880-12103073

PATIENT
  Age: 78 Year
  Sex: Female
  Weight: 49.94 kg

DRUGS (11)
  1. REVLIMID [Suspect]
     Indication: MULTIPLE MYELOMA WITHOUT MENTION OF REMISSION
     Dosage: 10 Milligram
     Route: 048
     Dates: start: 20100823
  2. REVLIMID [Suspect]
     Dosage: 25 Milligram
     Route: 048
     Dates: start: 201008, end: 201107
  3. REVLIMID [Suspect]
     Dosage: 10 Milligram
     Route: 048
     Dates: start: 201107, end: 2012
  4. REVLIMID [Suspect]
     Dosage: 5 Milligram
     Route: 048
     Dates: start: 20120828, end: 20121010
  5. DEXAMETHASONE SODIUM PHOSPHATE [Suspect]
     Indication: MULTIPLE MYELOMA
     Dosage: 4 Milligram
     Route: 041
     Dates: start: 20120828, end: 20121010
  6. CARFILZOMIB [Suspect]
     Indication: MULTIPLE MYELOMA
     Dosage: 20 milligram/sq. meter
     Route: 041
     Dates: start: 20120821, end: 20121010
  7. POTASSIUM CHLORIDE [Concomitant]
     Indication: DRUG USE FOR UNKNOWN INDICATION
     Route: 065
  8. SYNTHROID [Concomitant]
     Indication: HYPERTHYROIDISM
     Route: 065
  9. LOPRESSOR [Concomitant]
     Indication: HYPERTENSION
     Route: 065
  10. HYDROMORPHONE [Concomitant]
     Indication: PAIN
     Route: 065
     Dates: start: 20120801
  11. ASPIRIN [Concomitant]
     Indication: PROPHYLAXIS
     Route: 065

REACTIONS (1)
  - Plasma cell myeloma [Fatal]
